FAERS Safety Report 16893664 (Version 2)
Quarter: 2019Q4

REPORT INFORMATION
  Report Type: Spontaneous
  Country: ES (occurrence: ES)
  Receive Date: 20191008
  Receipt Date: 20191223
  Transmission Date: 20200122
  Serious: Yes (Hospitalization)
  Sender: FDA-Public Use
  Company Number: ES-PFIZER INC-2019427303

PATIENT
  Age: 57 Year
  Sex: Female

DRUGS (4)
  1. CYCLOPHOSPHAMIDE. [Suspect]
     Active Substance: CYCLOPHOSPHAMIDE
     Indication: B-CELL LYMPHOMA
     Dosage: 1200 MG, EVERY 3 WEEKS (1200 MG EVERY 21 DAYS)
     Route: 042
     Dates: start: 20190814
  2. VINCRISTINE SULFATE. [Suspect]
     Active Substance: VINCRISTINE SULFATE
     Indication: B-CELL LYMPHOMA
     Dosage: 2 MG, EVERY 3 WEEKS (2 MG EVERY 21 DAYS)
     Route: 042
     Dates: start: 20190814
  3. RITUXIMAB. [Suspect]
     Active Substance: RITUXIMAB
     Indication: B-CELL LYMPHOMA
     Dosage: 610 MG, EVERY 3 WEEKS (610 MG EVERY 21 DAYS)
     Route: 042
     Dates: start: 20190814
  4. DOXORUBICIN HCL [Suspect]
     Active Substance: DOXORUBICIN HYDROCHLORIDE
     Indication: B-CELL LYMPHOMA
     Dosage: 81 MG, EVERY 3 WEEKS (81 MG EVERY 21 DAYS)
     Route: 042
     Dates: start: 20190814

REACTIONS (2)
  - Mucosal inflammation [Recovered/Resolved]
  - Pancytopenia [Recovering/Resolving]

NARRATIVE: CASE EVENT DATE: 20190824
